FAERS Safety Report 8576096-2 (Version None)
Quarter: 2012Q3

REPORT INFORMATION
  Report Type: 
  Country: None (occurrence: None)
  Receive Date: 20120807
  Receipt Date: 20120530
  Transmission Date: 20120928
  Serious: No
  Sender: FDA-Public Use
  Company Number: US-009507513-1207USA006549

PATIENT

DRUGS (2)
  1. MIRALAX [Suspect]
     Indication: MEDICAL OBSERVATION
     Dosage: 17 G, TID
     Route: 048
     Dates: start: 20120530
  2. MIRALAX [Suspect]
     Indication: COLONOSCOPY

REACTIONS (2)
  - OVERDOSE [None]
  - OFF LABEL USE [None]
